FAERS Safety Report 4978873-3 (Version None)
Quarter: 2006Q2

REPORT INFORMATION
  Report Type: 
  Country: None (occurrence: None)
  Receive Date: 20060417
  Receipt Date: 20060331
  Transmission Date: 20061013
  Serious: No
  Sender: FDA-Public Use
  Company Number: 230045K06GBR

PATIENT
  Sex: Female

DRUGS (1)
  1. REBIF [Suspect]

REACTIONS (1)
  - BREAST CANCER [None]
